FAERS Safety Report 5486561-2 (Version None)
Quarter: 2007Q3

REPORT INFORMATION
  Report Type: 
  Country: None (occurrence: None)
  Receive Date: 20070920
  Receipt Date: 20061211
  Transmission Date: 20080115
  Serious: No
  Sender: FDA-Public Use
  Company Number: 06P-163-0353246-00

PATIENT
  Age: 36 Year
  Sex: Male

DRUGS (1)
  1. DEPAKOTE ER [Suspect]
     Indication: EPILEPSY
     Dosage: PER ORAL
     Route: 048
     Dates: start: 19830101

REACTIONS (1)
  - NEUTROPENIA [None]
